FAERS Safety Report 5603014-9 (Version None)
Quarter: 2008Q1

REPORT INFORMATION
  Report Type: 
  Country: None (occurrence: None)
  Receive Date: 20080125
  Receipt Date: 20080116
  Transmission Date: 20080703
  Serious: Yes (Life-Threatening, Hospitalization)
  Sender: FDA-Public Use
  Company Number: US-MERCK-0801USA03249

PATIENT
  Age: 72 Year
  Sex: Male

DRUGS (4)
  1. DECADRON [Suspect]
     Route: 048
     Dates: start: 20050501, end: 20060601
  2. THALOMID [Suspect]
     Indication: MULTIPLE MYELOMA
     Route: 048
     Dates: start: 20050222, end: 20050101
  3. EPOETIN ALFA [Concomitant]
     Route: 065
     Dates: start: 20050701
  4. WARFARIN [Concomitant]
     Route: 065
     Dates: start: 20050501, end: 20070501

REACTIONS (1)
  - PULMONARY EMBOLISM [None]
